FAERS Safety Report 6996924-1 (Version None)
Quarter: 2010Q3

REPORT INFORMATION
  Report Type: 
  Country: None (occurrence: None)
  Receive Date: 20100918
  Receipt Date: 20091021
  Transmission Date: 20110219
  Serious: No
  Sender: FDA-Public Use
  Company Number: US-WYE-H10333709

PATIENT
  Sex: Male
  Weight: 118.04 kg

DRUGS (9)
  1. PRISTIQ [Suspect]
     Indication: DEPRESSION
     Route: 048
     Dates: start: 20090714
  2. CRESTOR [Concomitant]
  3. CELEBREX [Concomitant]
  4. MIRAPEX [Concomitant]
  5. TRAZODONE HCL [Concomitant]
  6. NORVASC [Concomitant]
  7. FLUOXETINE [Suspect]
     Route: 048
     Dates: end: 20090724
  8. FLUOXETINE [Suspect]
     Route: 048
     Dates: start: 20090724
  9. THYROID TAB [Concomitant]

REACTIONS (2)
  - DIZZINESS [None]
  - TREMOR [None]
